FAERS Safety Report 16266590 (Version 3)
Quarter: 2019Q4

REPORT INFORMATION
  Report Type: Spontaneous
  Country: US (occurrence: US)
  Receive Date: 20190502
  Receipt Date: 20191025
  Transmission Date: 20200122
  Serious: Yes (Other)
  Sender: FDA-Public Use
  Company Number: US-ASTRAZENECA-2018SF65703

PATIENT

DRUGS (14)
  1. AMITIZA [Concomitant]
     Active Substance: LUBIPROSTONE
  2. ZOLPIDEM [Concomitant]
     Active Substance: ZOLPIDEM TARTRATE
  3. HALOPERIDOL. [Concomitant]
     Active Substance: HALOPERIDOL
  4. NIFEDIPINE. [Concomitant]
     Active Substance: NIFEDIPINE
  5. NEXIUM [Suspect]
     Active Substance: ESOMEPRAZOLE MAGNESIUM
     Route: 048
  6. BUPROPION. [Concomitant]
     Active Substance: BUPROPION
  7. MORPHINE SULFATE. [Concomitant]
     Active Substance: MORPHINE SULFATE
  8. LISINOPRIL. [Concomitant]
     Active Substance: LISINOPRIL
  9. LAMOTRIGINE. [Concomitant]
     Active Substance: LAMOTRIGINE
  10. CLONAZEPAM. [Concomitant]
     Active Substance: CLONAZEPAM
  11. NEXIUM [Suspect]
     Active Substance: ESOMEPRAZOLE MAGNESIUM
     Dosage: 40 MG
     Route: 048
     Dates: start: 20130222
  12. LOSARTAN. [Concomitant]
     Active Substance: LOSARTAN
  13. NEXIUM [Suspect]
     Active Substance: ESOMEPRAZOLE MAGNESIUM
     Dosage: 40 MG
     Route: 065
     Dates: start: 20150427
  14. GABAPENTIN. [Concomitant]
     Active Substance: GABAPENTIN

REACTIONS (5)
  - Chronic kidney disease [Unknown]
  - Renal failure [Unknown]
  - Renal injury [Unknown]
  - Rebound acid hypersecretion [Unknown]
  - Acute kidney injury [Unknown]
